FAERS Safety Report 4621270-0 (Version None)
Quarter: 2005Q1

REPORT INFORMATION
  Report Type: 
  Country: None (occurrence: None)
  Receive Date: 20050329
  Receipt Date: 20050316
  Transmission Date: 20050727
  Serious: Yes (Death, Hospitalization)
  Sender: FDA-Public Use
  Company Number: PL-JNJFOC-20050305021

PATIENT
  Age: 48 Year
  Sex: Male

DRUGS (4)
  1. PARACETAMOL [Suspect]
  2. PARACETAMOL [Suspect]
     Indication: VIRAL INFECTION
     Dosage: 2-3 G DAILY
  3. ALCOHOL [Suspect]
     Indication: DRUG USE FOR UNKNOWN INDICATION
  4. CLARITHROMYCIN [Concomitant]

REACTIONS (22)
  - ANURIA [None]
  - ATRIAL FIBRILLATION [None]
  - BLOOD PH INCREASED [None]
  - BLOOD POTASSIUM INCREASED [None]
  - DIARRHOEA [None]
  - DRUG INEFFECTIVE [None]
  - DRUG TOXICITY [None]
  - HAEMODIALYSIS [None]
  - HEPATIC ENCEPHALOPATHY [None]
  - HEPATIC FAILURE [None]
  - HEPATOCELLULAR DAMAGE [None]
  - HEPATOMEGALY [None]
  - HYPERTHYROIDISM [None]
  - HYPERTROPHIC CARDIOMYOPATHY [None]
  - INTERNATIONAL NORMALISED RATIO INCREASED [None]
  - LIPOPROTEIN DEFICIENCY [None]
  - NAUSEA [None]
  - OEDEMA PERIPHERAL [None]
  - PNEUMONIA [None]
  - RENAL FAILURE [None]
  - SHOCK [None]
  - VOMITING [None]
